FAERS Safety Report 18552688 (Version 2)
Quarter: 2020Q4

REPORT INFORMATION
  Report Type: Spontaneous
  Country: SI (occurrence: SI)
  Receive Date: 20201127
  Receipt Date: 20201209
  Transmission Date: 20210114
  Serious: Yes (Other)
  Sender: FDA-Public Use
  Company Number: SI-TEVA-2020-SI-1852440

PATIENT
  Age: 33 Year
  Sex: Male

DRUGS (2)
  1. AZITHROMYCIN ANHYDROUS. [Suspect]
     Active Substance: AZITHROMYCIN ANHYDROUS
     Route: 065
  2. AZTREONAM. [Suspect]
     Active Substance: AZTREONAM
     Route: 065

REACTIONS (3)
  - Drug-induced liver injury [Recovering/Resolving]
  - Transaminases increased [Recovering/Resolving]
  - Hepatic function abnormal [Recovering/Resolving]
